FAERS Safety Report 6105622-8 (Version None)
Quarter: 2009Q1

REPORT INFORMATION
  Report Type: 
  Country: None (occurrence: None)
  Receive Date: 20090304
  Receipt Date: 20090304
  Transmission Date: 20090719
  Serious: Yes (Other)
  Sender: FDA-Public Use
  Company Number: None

PATIENT
  Age: 24 Year
  Sex: Male
  Weight: 74.8435 kg

DRUGS (1)
  1. VALTREX [Suspect]
     Indication: HERPES SIMPLEX

REACTIONS (4)
  - AGGRESSION [None]
  - AGITATION [None]
  - DEREALISATION [None]
  - MENTAL DISORDER [None]
